FAERS Safety Report 9736484 (Version 2)
Quarter: 2013Q4

REPORT INFORMATION
  Report Type: Report from Study
  Country: NL (occurrence: NL)
  Receive Date: 20131206
  Receipt Date: 20131216
  Transmission Date: 20140711
  Serious: Yes (Other)
  Sender: FDA-Public Use
  Company Number: NL-CELGENEUS-114-21880-13115228

PATIENT
  Age: 69 Year
  Sex: Female
  Weight: 90 kg

DRUGS (4)
  1. REVLIMID [Suspect]
     Indication: MYELODYSPLASTIC SYNDROME
     Route: 048
     Dates: start: 20131018, end: 20131107
  2. REVLIMID [Suspect]
     Route: 048
     Dates: start: 20131205
  3. ERYTHROPOIETIN [Suspect]
     Indication: MYELODYSPLASTIC SYNDROME
     Route: 058
     Dates: start: 20131018, end: 20131101
  4. ERYTHROPOIETIN [Suspect]
     Route: 058
     Dates: start: 20131205

REACTIONS (1)
  - Infected dermal cyst [Recovered/Resolved]
